FAERS Safety Report 5009968-6 (Version None)
Quarter: 2006Q2

REPORT INFORMATION
  Report Type: 
  Country: None (occurrence: None)
  Receive Date: 20060522
  Receipt Date: 20060516
  Transmission Date: 20061013
  Serious: Yes (Other)
  Sender: FDA-Public Use
  Company Number: 200611995GDS

PATIENT
  Age: 11 Year
  Sex: Female
  Weight: 40 kg

DRUGS (2)
  1. ASPIRIN [Suspect]
     Indication: PYREXIA
     Dosage: 300 MG, TOTAL DAILY, ORAL
     Route: 048
     Dates: start: 20060410
  2. PASPERTIN [Concomitant]

REACTIONS (2)
  - JOINT SWELLING [None]
  - RASH [None]
